FAERS Safety Report 18028461 (Version 2)
Quarter: 2020Q4

REPORT INFORMATION
  Report Type: Spontaneous
  Country: US (occurrence: US)
  Receive Date: 20200715
  Receipt Date: 20201006
  Transmission Date: 20210113
  Serious: Yes (Other)
  Sender: FDA-Public Use
  Company Number: NVSC2020US197898

PATIENT
  Sex: Female

DRUGS (1)
  1. BIMATOPROST. [Suspect]
     Active Substance: BIMATOPROST
     Indication: GROWTH OF EYELASHES
     Dosage: QD (EVENING BEFORE BED)
     Route: 065

REACTIONS (5)
  - Hypersensitivity [Unknown]
  - Adverse drug reaction [Unknown]
  - Ocular hyperaemia [Unknown]
  - Eye swelling [Unknown]
  - Eye pruritus [Unknown]
